FAERS Safety Report 8343494-1 (Version None)
Quarter: 2012Q2

REPORT INFORMATION
  Report Type: 
  Country: None (occurrence: None)
  Receive Date: 20120508
  Receipt Date: 20120504
  Transmission Date: 20120825
  Serious: Yes (Other)
  Sender: FDA-Public Use
  Company Number: PHHY2012IT038573

PATIENT
  Sex: Female

DRUGS (2)
  1. AVASTIN [Concomitant]
     Indication: BREAST CANCER
     Dosage: UNK UKN, UNK
     Route: 042
  2. ZOLEDRONIC [Suspect]
     Indication: METASTASES TO BONE
     Dosage: UNK UKN, UNK
     Dates: start: 20110315, end: 20111115

REACTIONS (1)
  - OSTEONECROSIS OF JAW [None]
